FAERS Safety Report 5165894-3 (Version None)
Quarter: 2006Q4

REPORT INFORMATION
  Report Type: 
  Country: None (occurrence: None)
  Receive Date: 20061128
  Receipt Date: 20061114
  Transmission Date: 20070319
  Serious: Yes (Hospitalization)
  Sender: FDA-Public Use
  Company Number: 232593

PATIENT
  Age: 27 Year
  Sex: Female

DRUGS (2)
  1. RITUXAN [Suspect]
     Indication: CENTRAL NERVOUS SYSTEM LYMPHOMA
     Dosage: 375 MG/M2, INTRAVENOUS
     Route: 042
  2. TEMODAR [Concomitant]

REACTIONS (1)
  - BRADYCARDIA [None]
